FAERS Safety Report 6258725-1 (Version None)
Quarter: 2009Q3

REPORT INFORMATION
  Report Type: 
  Country: None (occurrence: None)
  Receive Date: 20090707
  Receipt Date: 20090626
  Transmission Date: 20100115
  Serious: Yes (Death)
  Sender: FDA-Public Use
  Company Number: B0567226A

PATIENT
  Sex: Female

DRUGS (6)
  1. SERETIDE [Suspect]
     Indication: ASTHMA
     Dosage: 1PUFF TWICE PER DAY
     Route: 055
  2. AMLODIPINE [Suspect]
     Indication: HYPERTENSION
     Dosage: 5MG PER DAY
  3. CARBOCISTEIN [Suspect]
  4. CETIRIZINE [Suspect]
     Dosage: 10MG PER DAY
  5. DIGOXIN [Suspect]
     Dosage: 125MG PER DAY
  6. WARFARIN [Suspect]
     Indication: THROMBOSIS PROPHYLAXIS

REACTIONS (5)
  - ASTHMA [None]
  - COUGH [None]
  - DEATH [None]
  - DYSPNOEA [None]
  - WHEEZING [None]
